FAERS Safety Report 17144681 (Version 1)
Quarter: 2019Q4

REPORT INFORMATION
  Report Type: Spontaneous
  Country: US (occurrence: US)
  Receive Date: 20191212
  Receipt Date: 20191212
  Transmission Date: 20200122
  Serious: No
  Sender: FDA-Public Use
  Company Number: US-009507513-1912USA002792

PATIENT
  Age: 77 Year
  Sex: Male

DRUGS (3)
  1. DORZOLAMIDE HYDROCHLORIDE. [Suspect]
     Active Substance: DORZOLAMIDE HYDROCHLORIDE
     Indication: CHORIORETINOPATHY
     Dosage: UNK
  2. ACETAZOLAMIDE. [Concomitant]
     Active Substance: ACETAZOLAMIDE
     Indication: CHORIORETINOPATHY
     Dosage: UNK
  3. EPLERENONE. [Concomitant]
     Active Substance: EPLERENONE
     Indication: CHORIORETINOPATHY
     Dosage: UNK

REACTIONS (1)
  - Off label use [Unknown]
